FAERS Safety Report 23940051 (Version 1)
Quarter: 2024Q2

REPORT INFORMATION
  Report Type: Spontaneous
  Country: US (occurrence: US)
  Receive Date: 20240605
  Receipt Date: 20240605
  Transmission Date: 20240716
  Serious: No
  Sender: FDA-Public Use
  Company Number: US-APOTEX-2024AP006323

PATIENT

DRUGS (1)
  1. GUANFACINE [Suspect]
     Active Substance: GUANFACINE
     Indication: Drug withdrawal maintenance therapy
     Dosage: UNK
     Route: 048

REACTIONS (2)
  - Off label use [Unknown]
  - Hypotension [Unknown]
